FAERS Safety Report 18596649 (Version 13)
Quarter: 2021Q3

REPORT INFORMATION
  Report Type: Report from Study
  Country: AU (occurrence: AU)
  Receive Date: 20201209
  Receipt Date: 20210913
  Transmission Date: 20211014
  Serious: Yes (Hospitalization)
  Sender: FDA-Public Use
  Company Number: AU-ROCHE-2725570

PATIENT
  Age: 51 Year
  Sex: Male
  Weight: 73 kg

DRUGS (10)
  1. NASONEX [Concomitant]
     Active Substance: MOMETASONE FUROATE
     Indication: SEASONAL ALLERGY
     Dosage: 1 SPRAY
     Route: 061
     Dates: start: 2016
  2. BACTRIM [Concomitant]
     Active Substance: SULFAMETHOXAZOLE\TRIMETHOPRIM
     Route: 048
     Dates: start: 20210112
  3. TIRAGOLUMAB. [Suspect]
     Active Substance: TIRAGOLUMAB
     Indication: METASTATIC NEOPLASM
     Dosage: ON 30/NOV/2020, RECEIVED MOST RECENT DOSE OF MTIG7192A, 840 MG PRIOR TO AE.?ON 09/FEB/2021, RECEIVED
     Route: 042
     Dates: start: 20201102
  4. ATEZOLIZUMAB. [Suspect]
     Active Substance: ATEZOLIZUMAB
     Indication: METASTATIC NEOPLASM
     Dosage: ON 30/NOV/2020, RECEIVED MOST RECENT DOSE OF ATEZOLIZUMAB, 1680 MG PRIOR TO AE AT 1:40 PM ?2:10 PM.
     Route: 041
     Dates: start: 20201102
  5. NILSTAT [Concomitant]
     Active Substance: NYSTATIN
     Indication: INFECTIVE GLOSSITIS
     Route: 061
     Dates: start: 20201104, end: 20201130
  6. FLUCONAZOLE. [Concomitant]
     Active Substance: FLUCONAZOLE
     Indication: ORAL CANDIDIASIS
     Route: 048
     Dates: start: 20210112, end: 20210212
  7. CIPROFLOXACIN. [Concomitant]
     Active Substance: CIPROFLOXACIN
     Indication: EYE DISCHARGE
     Route: 047
     Dates: start: 20210208, end: 20210211
  8. ENOXAPARIN [Concomitant]
     Active Substance: ENOXAPARIN
     Indication: THROMBOSIS PROPHYLAXIS
     Route: 058
     Dates: start: 20210301, end: 20210324
  9. FLUOROMETHOLONE. [Concomitant]
     Active Substance: FLUOROMETHOLONE
     Indication: EYE DISCHARGE
     Route: 047
     Dates: start: 20210211, end: 20210228
  10. PANTOPRAZOLE [Concomitant]
     Active Substance: PANTOPRAZOLE
     Route: 048
     Dates: start: 20201113

REACTIONS (2)
  - Pneumonitis [Recovered/Resolved]
  - Laryngeal oedema [Recovered/Resolved with Sequelae]

NARRATIVE: CASE EVENT DATE: 20201202
